FAERS Safety Report 20058387 (Version 1)
Quarter: 2021Q4

REPORT INFORMATION
  Report Type: Spontaneous
  Country: US (occurrence: None)
  Receive Date: 20211111
  Receipt Date: 20211111
  Transmission Date: 20220303
  Serious: No
  Sender: FDA-Public Use
  Company Number: None

PATIENT

DRUGS (2)
  1. ANTICOAGULANT SODIUM CITRATE [Suspect]
     Active Substance: SODIUM CITRATE
  2. DEXTROSE [Suspect]
     Active Substance: DEXTROSE

REACTIONS (1)
  - Product barcode issue [None]
